FAERS Safety Report 22065798 (Version 1)
Quarter: 2023Q1

REPORT INFORMATION
  Report Type: Spontaneous
  Country: US (occurrence: US)
  Receive Date: 20230306
  Receipt Date: 20230306
  Transmission Date: 20230417
  Serious: Yes (Other)
  Sender: FDA-Public Use
  Company Number: US-INTRA-CELLULAR THERAPIES, INC.-2023ICT00318

PATIENT
  Age: 25 Year
  Sex: Male

DRUGS (1)
  1. CAPLYTA [Suspect]
     Active Substance: LUMATEPERONE
     Indication: Schizophrenia
     Dosage: UNK
     Dates: end: 20230223

REACTIONS (2)
  - Suicidal ideation [Unknown]
  - Aggression [Unknown]

NARRATIVE: CASE EVENT DATE: 20230223
